FAERS Safety Report 9466009 (Version 1)
Quarter: 2013Q3

REPORT INFORMATION
  Report Type: Spontaneous
  Country: US (occurrence: None)
  Receive Date: 20130816
  Receipt Date: 20130816
  Transmission Date: 20140515
  Serious: Yes (Death)
  Sender: FDA-Public Use
  Company Number: None

PATIENT
  Age: 87 Year
  Sex: Male

DRUGS (1)
  1. DEFEROXAMINE [Suspect]
     Indication: IRON OVERLOAD
     Dosage: 1000MG QD IM 5DAYS/WEEK
     Route: 030
     Dates: start: 20120118, end: 20120308

REACTIONS (1)
  - Death [None]
